FAERS Safety Report 4406364-7 (Version None)
Quarter: 2004Q3

REPORT INFORMATION
  Report Type: 
  Country: None (occurrence: None)
  Receive Date: 20040723
  Receipt Date: 20030707
  Transmission Date: 20050211
  Serious: No
  Sender: FDA-Public Use
  Company Number: US-GLAXOSMITHKLINE-A0415571A

PATIENT
  Age: 72 Year
  Sex: Male

DRUGS (9)
  1. AVANDIA [Suspect]
     Dosage: 4MG PER DAY
     Route: 048
     Dates: start: 20030601, end: 20030707
  2. GLYBURIDE [Concomitant]
  3. COUMADIN [Concomitant]
  4. DIGOXIN [Concomitant]
  5. TRIAMTERENE AND HYDROCHLOROTHIAZIDE [Concomitant]
  6. LOTREL [Concomitant]
  7. FLOMAX [Concomitant]
  8. TOPROL-XL [Concomitant]
  9. LIPITOR [Concomitant]

REACTIONS (3)
  - DYSPNOEA [None]
  - EXTRASYSTOLES [None]
  - OEDEMA PERIPHERAL [None]
